FAERS Safety Report 7922609-0 (Version None)
Quarter: 2011Q4

REPORT INFORMATION
  Report Type: 
  Country: None (occurrence: None)
  Receive Date: 20111117
  Receipt Date: 20101227
  Transmission Date: 20120403
  Serious: No
  Sender: FDA-Public Use
  Company Number: US-ALLERGAN-1016730US

PATIENT
  Age: 69 Year
  Sex: Male

DRUGS (1)
  1. COMBIGAN [Suspect]
     Indication: GLAUCOMA
     Dosage: 1 GTT, BID
     Route: 047
     Dates: start: 20071201, end: 20101207

REACTIONS (5)
  - ASTHENIA [None]
  - RASH ERYTHEMATOUS [None]
  - MUSCULAR WEAKNESS [None]
  - DIZZINESS [None]
  - EYELID DISORDER [None]
